FAERS Safety Report 4943513-6 (Version None)
Quarter: 2006Q1

REPORT INFORMATION
  Report Type: 
  Country: None (occurrence: None)
  Receive Date: 20060314
  Receipt Date: 20060303
  Transmission Date: 20060701
  Serious: Yes (Other)
  Sender: FDA-Public Use
  Company Number: 2006UW03623

PATIENT
  Age: 64 Year
  Sex: Female
  Weight: 99.8 kg

DRUGS (4)
  1. PULMICORT [Suspect]
     Indication: ASTHMA
     Route: 055
  2. FORADIL [Concomitant]
  3. XOPENEX [Concomitant]
  4. TENORMIN [Concomitant]
     Route: 048

REACTIONS (1)
  - NEOPLASM PROGRESSION [None]
